FAERS Safety Report 26002103 (Version 1)
Quarter: 2025Q4

REPORT INFORMATION
  Report Type: Spontaneous
  Country: US (occurrence: US)
  Receive Date: 20251105
  Receipt Date: 20251105
  Transmission Date: 20260118
  Serious: Yes (Death, Other)
  Sender: PURDUE
  Company Number: US-PURDUE PHARMA-USA-2025-0321838

PATIENT
  Age: 36 Year
  Sex: Male

DRUGS (1)
  1. MORPHINE SULFATE [Suspect]
     Active Substance: MORPHINE SULFATE
     Indication: Oropharyngeal pain
     Dosage: UNK
     Route: 065
     Dates: start: 20190605

REACTIONS (3)
  - Post procedural haemorrhage [Fatal]
  - Haemoptysis [Unknown]
  - Fall [Unknown]

NARRATIVE: CASE EVENT DATE: 20190601
